FAERS Safety Report 15647520 (Version 2)
Quarter: 2019Q2

REPORT INFORMATION
  Report Type: Spontaneous
  Country: US (occurrence: US)
  Receive Date: 20181122
  Receipt Date: 20190621
  Transmission Date: 20190711
  Serious: Yes (Death)
  Sender: FDA-Public Use
  Company Number: US-SERB S.A.S.-2059196

PATIENT
  Age: 35 Year
  Sex: Female

DRUGS (4)
  1. SODUM THIOSULFATE [Concomitant]
     Active Substance: SODIUM THIOSULFATE
  2. NOREPINEPHRINE. [Concomitant]
     Active Substance: NOREPINEPHRINE
     Route: 042
  3. CYANOKIT [Suspect]
     Active Substance: HYDROXOCOBALAMIN
     Indication: BLOOD CYANIDE INCREASED
     Route: 042
  4. VASOPRESSIN. [Concomitant]
     Active Substance: VASOPRESSIN
     Route: 042

REACTIONS (1)
  - Drug ineffective [Fatal]
